FAERS Safety Report 19766336 (Version 2)
Quarter: 2022Q2

REPORT INFORMATION
  Report Type: Spontaneous
  Country: US (occurrence: US)
  Receive Date: 20210831
  Receipt Date: 20220504
  Transmission Date: 20220721
  Serious: No
  Sender: FDA-Public Use
  Company Number: US-ELI_LILLY_AND_COMPANY-US202108001033

PATIENT
  Sex: Male

DRUGS (2)
  1. HUMALOG [Suspect]
     Active Substance: INSULIN LISPRO
     Indication: Type 1 diabetes mellitus
     Dosage: UNK UNK, PRN (ON A SLIDING SCALE OF 10-20 UNITS AFTER EACH MEAL)
     Route: 065
  2. HUMALOG [Suspect]
     Active Substance: INSULIN LISPRO
     Dosage: UNK UNK, PRN (ON A SLIDING SCALE OF 10-20 UNITS AFTER EACH MEAL)
     Route: 065

REACTIONS (6)
  - Blood glucose increased [Recovered/Resolved]
  - Visual impairment [Unknown]
  - Injection site bruising [Unknown]
  - Incorrect dose administered [Unknown]
  - Product storage error [Unknown]
  - Product dose omission issue [Unknown]
